FAERS Safety Report 7372845-X (Version None)
Quarter: 2011Q1

REPORT INFORMATION
  Report Type: 
  Country: None (occurrence: None)
  Receive Date: 20110324
  Receipt Date: 20110316
  Transmission Date: 20110831
  Serious: Yes (Other)
  Sender: FDA-Public Use
  Company Number: US-PFIZER INC-2006124574

PATIENT
  Sex: Male
  Weight: 94 kg

DRUGS (6)
  1. ARICEPT [Concomitant]
     Dosage: 10 MG, 1X/DAY
  2. ASPIRIN [Concomitant]
     Dosage: 81 MG, 1X/DAY
  3. NAMENDA [Concomitant]
     Dosage: 10 MG, 2X/DAY
  4. FOLIC ACID [Concomitant]
     Dosage: 1 MG, 1X/DAY
  5. VITAMIN B-12 [Concomitant]
     Dosage: 600 MG, 1X/DAY
  6. LIPITOR [Suspect]
     Dosage: 10 MG, 1X/DAY
     Dates: start: 20030901

REACTIONS (9)
  - NEUROPATHY PERIPHERAL [None]
  - DEPRESSION [None]
  - FATIGUE [None]
  - BALANCE DISORDER [None]
  - DISORIENTATION [None]
  - AMNESIA [None]
  - ASTHENIA [None]
  - COGNITIVE DISORDER [None]
  - GAIT DISTURBANCE [None]
